FAERS Safety Report 8617061-6 (Version None)
Quarter: 2012Q3

REPORT INFORMATION
  Report Type: 
  Country: None (occurrence: None)
  Receive Date: 20120823
  Receipt Date: 20120815
  Transmission Date: 20120928
  Serious: No
  Sender: FDA-Public Use
  Company Number: US-009507513-1208USA007586

PATIENT

DRUGS (2)
  1. IMITREX [Concomitant]
     Indication: MIGRAINE
  2. MAXALT [Suspect]
     Indication: MIGRAINE
     Dosage: UNK
     Route: 048

REACTIONS (1)
  - THERAPEUTIC RESPONSE DECREASED [None]
